FAERS Safety Report 10223996 (Version 4)
Quarter: 2014Q4

REPORT INFORMATION
  Report Type: Spontaneous
  Country: JP (occurrence: None)
  Receive Date: 20140605
  Receipt Date: 20141015
  Transmission Date: 20150528
  Serious: Yes (Hospitalization, Other)
  Sender: FDA-Public Use
  Company Number: JP-015909

PATIENT
  Age: 80 Year
  Sex: Male
  Weight: 55 kg

DRUGS (6)
  1. BLOSTAR M [Concomitant]
  2. REBAMIPIDE [Concomitant]
     Active Substance: REBAMIPIDE
  3. DEGARELIX [Suspect]
     Active Substance: DEGARELIX
     Indication: PROSTATE CANCER
     Route: 058
     Dates: start: 20140221, end: 20140221
  4. URIEF [Concomitant]
     Active Substance: SILODOSIN
  5. DECADRON [Concomitant]
     Active Substance: DEXAMETHASONE
  6. URSO /00465701/ [Concomitant]

REACTIONS (5)
  - Asthenia [None]
  - Brain natriuretic peptide increased [None]
  - Decreased appetite [None]
  - Gait disturbance [None]
  - Dyspnoea [None]

NARRATIVE: CASE EVENT DATE: 20140519
